FAERS Safety Report 4999191-3 (Version None)
Quarter: 2006Q2

REPORT INFORMATION
  Report Type: 
  Country: None (occurrence: None)
  Receive Date: 20060509
  Receipt Date: 20060420
  Transmission Date: 20061013
  Serious: Yes (Other)
  Sender: FDA-Public Use
  Company Number: US200604003788

PATIENT
  Age: 60 Year
  Sex: Female

DRUGS (4)
  1. FORTEO [Suspect]
     Indication: OSTEOPOROSIS
     Dates: start: 20060125, end: 20060416
  2. FORTEO PEN (FORTEO PEN) PEN, DISPOSABLE [Concomitant]
  3. PLENDIL [Concomitant]
  4. VITAMINS-MINERALS THERAPEUTIC (VITAMINS-MINERALS THERAPEUTIC) [Concomitant]

REACTIONS (7)
  - CHILLS [None]
  - CONVULSION [None]
  - FEAR [None]
  - FEELING HOT [None]
  - HEART RATE INCREASED [None]
  - PHARMACEUTICAL PRODUCT COMPLAINT [None]
  - TREMOR [None]
